FAERS Safety Report 14773135 (Version 1)
Quarter: 2018Q2

REPORT INFORMATION
  Report Type: Report from Study
  Country: GB (occurrence: GB)
  Receive Date: 20180418
  Receipt Date: 20180418
  Transmission Date: 20180711
  Serious: Yes (Other)
  Sender: FDA-Public Use
  Company Number: GB-ACCORD-065641

PATIENT
  Age: 58 Year
  Sex: Male

DRUGS (7)
  1. TEMOZOLOMIDE. [Suspect]
     Active Substance: TEMOZOLOMIDE
     Indication: GLIOBLASTOMA MULTIFORME
     Route: 048
     Dates: start: 20170912, end: 20171009
  2. CYCLIZINE [Concomitant]
     Active Substance: CYCLIZINE
     Dosage: TOTAL DAILY DOSE 50 MG, PRN
     Route: 048
     Dates: start: 20171031
  3. DEXAMETHASONE. [Concomitant]
     Active Substance: DEXAMETHASONE
     Indication: NAUSEA
     Dosage: 2 MG, QD
     Route: 048
     Dates: start: 20171016
  4. LEVETIRACETAM. [Concomitant]
     Active Substance: LEVETIRACETAM
     Indication: CONVULSION PROPHYLAXIS
     Dosage: 250 MG, BID
     Route: 048
     Dates: start: 20170712
  5. LANSOPRAZOLE. [Concomitant]
     Active Substance: LANSOPRAZOLE
     Indication: PROPHYLAXIS
     Dosage: 30 MG, QD
     Route: 048
     Dates: start: 20171006, end: 20171030
  6. SULFAMETHOXAZOLE/TRIMETHOPRIM [Concomitant]
     Indication: ANTIFUNGAL PROPHYLAXIS
     Dosage: 480 MG, BID ON MONDAY, WEDNESDAY, FRIDAY
     Route: 048
     Dates: start: 20170911, end: 20171030
  7. MAXIDEX [Concomitant]
     Active Substance: DEXAMETHASONE
     Indication: OCULAR TOXICITY
     Dosage: 1-2 DROPS; FOR 7 DAYS, BEGINNING 2 DAYS PRIOR TO EACH STUDY DRUG ADMINISTRATION (3 IN 1 D)
     Route: 047

REACTIONS (4)
  - Urinary tract disorder [Not Recovered/Not Resolved]
  - Corneal dystrophy [Unknown]
  - Glomerular filtration rate decreased [Not Recovered/Not Resolved]
  - Renal disorder [Not Recovered/Not Resolved]

NARRATIVE: CASE EVENT DATE: 20171010
